FAERS Safety Report 5047410-X (Version None)
Quarter: 2006Q3

REPORT INFORMATION
  Report Type: 
  Country: None (occurrence: None)
  Receive Date: 20060710
  Receipt Date: 20060710
  Transmission Date: 20061208
  Serious: No
  Sender: FDA-Public Use
  Company Number: None

PATIENT
  Sex: Male
  Weight: 65.7716 kg

DRUGS (1)
  1. PROCRIT [Suspect]
     Indication: ANAEMIA
     Dosage: 5000 UNITS 2 WEEKS CUTANEOUS
     Route: 003
     Dates: start: 20060301, end: 20060707

REACTIONS (1)
  - ASTHENIA [None]
